FAERS Safety Report 18797540 (Version 3)
Quarter: 2021Q1

REPORT INFORMATION
  Report Type: Spontaneous
  Country: US (occurrence: US)
  Receive Date: 20210128
  Receipt Date: 20210217
  Transmission Date: 20210419
  Serious: Yes (Other)
  Sender: FDA-Public Use
  Company Number: US-CELGENEUS-USA-20210105788

PATIENT
  Age: 68 Year
  Sex: Female

DRUGS (2)
  1. REVLIMID [Suspect]
     Active Substance: LENALIDOMIDE
     Indication: PLASMA CELL MYELOMA
     Dosage: 25 MILLIGRAM
     Route: 048
     Dates: start: 20201027
  2. REVLIMID [Suspect]
     Active Substance: LENALIDOMIDE
     Dosage: 15 MILLIGRAM
     Route: 048
     Dates: start: 202101

REACTIONS (4)
  - Thrombosis [Recovered/Resolved]
  - Abdominal pain [Recovered/Resolved]
  - Rash [Recovered/Resolved]
  - Hepatic cancer [Unknown]

NARRATIVE: CASE EVENT DATE: 20210104
